FAERS Safety Report 23212810 (Version 2)
Quarter: 2023Q4

REPORT INFORMATION
  Report Type: Report from Study
  Country: CN (occurrence: CN)
  Receive Date: 20231121
  Receipt Date: 20231204
  Transmission Date: 20240110
  Serious: Yes (Hospitalization, Other)
  Sender: FDA-Public Use
  Company Number: CN-JNJFOC-20231121234

PATIENT

DRUGS (5)
  1. RISPERDAL [Interacting]
     Active Substance: RISPERIDONE
     Indication: Product used for unknown indication
     Route: 065
  2. RISPERDAL CONSTA [Suspect]
     Active Substance: RISPERIDONE
     Indication: Product used for unknown indication
     Route: 030
  3. RISPERDAL CONSTA [Suspect]
     Active Substance: RISPERIDONE
  4. RISPERDAL CONSTA [Suspect]
     Active Substance: RISPERIDONE
  5. RISPERDAL CONSTA [Suspect]
     Active Substance: RISPERIDONE

REACTIONS (49)
  - Neuroleptic malignant syndrome [Unknown]
  - Electrocardiogram QT prolonged [Unknown]
  - Dystonia [Unknown]
  - Depressed level of consciousness [Unknown]
  - Hyperprolactinaemia [Unknown]
  - Tardive dyskinesia [Unknown]
  - Hypothermia [Unknown]
  - Coma [Unknown]
  - Suicide attempt [Unknown]
  - Suicidal ideation [Unknown]
  - Hospitalisation [Unknown]
  - Schizophrenia [Unknown]
  - Drug abuse [Unknown]
  - Intentional self-injury [Unknown]
  - Weight increased [Unknown]
  - Somnolence [Unknown]
  - Abnormal weight gain [Unknown]
  - Extrapyramidal disorder [Unknown]
  - Parkinsonism [Unknown]
  - Blood prolactin increased [Unknown]
  - Tremor [Unknown]
  - Insomnia [Unknown]
  - Sedation [Unknown]
  - Hypotension [Unknown]
  - Dyskinesia [Unknown]
  - Tachycardia [Unknown]
  - Increased appetite [Unknown]
  - Akathisia [Unknown]
  - Agitation [Unknown]
  - Gynaecomastia [Unknown]
  - Galactorrhoea [Unknown]
  - Confusional state [Unknown]
  - Aggression [Unknown]
  - Obesity [Unknown]
  - Emotional disorder [Unknown]
  - Emotional distress [Unknown]
  - Toxicity to various agents [Unknown]
  - Injury [Unknown]
  - General physical health deterioration [Unknown]
  - Syringe issue [Unknown]
  - Psychotic disorder [Unknown]
  - Accidental exposure to product [Unknown]
  - Intentional overdose [Unknown]
  - Exposure during pregnancy [Unknown]
  - Product dose omission issue [Unknown]
  - Treatment noncompliance [Unknown]
  - Needle issue [Unknown]
  - Drug interaction [Unknown]
  - Off label use [Unknown]
